FAERS Safety Report 23268727 (Version 11)
Quarter: 2025Q1

REPORT INFORMATION
  Report Type: Spontaneous
  Country: US (occurrence: US)
  Receive Date: 20231206
  Receipt Date: 20250305
  Transmission Date: 20250409
  Serious: No
  Sender: PFIZER
  Company Number: US-PFIZER INC-PV202300194577

PATIENT
  Age: 71 Year
  Sex: Female
  Weight: 65.76 kg

DRUGS (3)
  1. XELJANZ XR [Suspect]
     Active Substance: TOFACITINIB CITRATE
     Indication: Rheumatoid arthritis
     Dates: start: 202304, end: 2023
  2. XELJANZ XR [Suspect]
     Active Substance: TOFACITINIB CITRATE
  3. DICLOFENAC SODIUM [Concomitant]
     Active Substance: DICLOFENAC SODIUM
     Indication: Pain
     Route: 061

REACTIONS (3)
  - Fatigue [Unknown]
  - Dizziness [Not Recovered/Not Resolved]
  - Nasopharyngitis [Unknown]
